FAERS Safety Report 5345655-2 (Version None)
Quarter: 2007Q2

REPORT INFORMATION
  Report Type: 
  Country: None (occurrence: None)
  Receive Date: 20070605
  Receipt Date: 20061006
  Transmission Date: 20071010
  Serious: No
  Sender: FDA-Public Use
  Company Number: US-ASTRAZENECA-2006UW19448

PATIENT
  Sex: Female

DRUGS (5)
  1. PRILOSEC [Suspect]
  2. CLARITIN [Concomitant]
  3. ADVAIR DISKUS 100/50 [Concomitant]
  4. FORADIL [Concomitant]
  5. ASMANEX TWISTHALER [Concomitant]

REACTIONS (1)
  - VITAMIN B12 DEFICIENCY [None]
